FAERS Safety Report 20849633 (Version 3)
Quarter: 2022Q2

REPORT INFORMATION
  Report Type: Spontaneous
  Country: CA (occurrence: CA)
  Receive Date: 20220519
  Receipt Date: 20220621
  Transmission Date: 20220720
  Serious: Yes (Other)
  Sender: FDA-Public Use
  Company Number: CA-PFIZER INC-202200348593

PATIENT
  Age: 58 Year
  Sex: Female
  Weight: 61.678 kg

DRUGS (5)
  1. ABRILADA [Suspect]
     Active Substance: ADALIMUMAB-AFZB
     Indication: Psoriatic arthropathy
     Dosage: 40 MG, WEEKLY
     Route: 058
  2. CELEBREX [Concomitant]
     Active Substance: CELECOXIB
     Indication: Psoriatic arthropathy
     Dosage: 1 DF
  3. HUMIRA [Concomitant]
     Active Substance: ADALIMUMAB
     Dosage: UNK (HUMIRA SWITCH)
  4. PREDNISONE [Concomitant]
     Active Substance: PREDNISONE
     Indication: Psoriatic arthropathy
     Dosage: UNK
  5. PANTOPRAZOLE SODIUM [Concomitant]
     Active Substance: PANTOPRAZOLE SODIUM
     Dosage: UNK
     Dates: start: 202202, end: 20220511

REACTIONS (2)
  - Diarrhoea [Not Recovered/Not Resolved]
  - Off label use [Unknown]
